FAERS Safety Report 20224955 (Version 3)
Quarter: 2022Q2

REPORT INFORMATION
  Report Type: Spontaneous
  Country: CA (occurrence: CA)
  Receive Date: 20211223
  Receipt Date: 20220627
  Transmission Date: 20220721
  Serious: Yes (Hospitalization, Disabling, Other)
  Sender: FDA-Public Use
  Company Number: CA-TAKEDA-2021TUS000010

PATIENT
  Age: 80 Year
  Sex: Male
  Weight: 89 kg

DRUGS (69)
  1. ALBUTEROL SULFATE [Suspect]
     Active Substance: ALBUTEROL SULFATE
     Indication: Asthma
     Dosage: UNKNOWN
     Route: 065
  2. ALBUTEROL SULFATE [Suspect]
     Active Substance: ALBUTEROL SULFATE
     Dosage: UNKNOWN
     Route: 065
  3. ACETYLCYSTEINE [Suspect]
     Active Substance: ACETYLCYSTEINE
     Indication: Product used for unknown indication
     Dosage: UNKNOWN
     Route: 065
  4. ACETYLCYSTEINE [Suspect]
     Active Substance: ACETYLCYSTEINE
     Dosage: UNKNOWN
     Route: 065
  5. ACETYLCYSTEINE [Suspect]
     Active Substance: ACETYLCYSTEINE
     Dosage: UNKNOWN
     Route: 065
  6. PANTOPRAZOLE [Suspect]
     Active Substance: PANTOPRAZOLE
     Indication: Product used for unknown indication
     Dosage: UNKNOWN
     Route: 065
  7. PANTOPRAZOLE [Suspect]
     Active Substance: PANTOPRAZOLE
     Dosage: UNKNOWN
     Route: 065
  8. PANTOPRAZOLE [Suspect]
     Active Substance: PANTOPRAZOLE
     Dosage: UNKNOWN
     Route: 065
  9. ASPIRIN [Suspect]
     Active Substance: ASPIRIN
     Indication: Product used for unknown indication
     Dosage: UNKNOWN
     Route: 065
  10. MELATONIN [Suspect]
     Active Substance: MELATONIN
     Indication: Product used for unknown indication
     Dosage: UNKNOWN
     Route: 065
  11. MELATONIN [Suspect]
     Active Substance: MELATONIN
     Dosage: UNKNOWN
     Route: 065
  12. MELATONIN [Suspect]
     Active Substance: MELATONIN
     Dosage: UNKNOWN
     Route: 065
  13. FLOMAX [Suspect]
     Active Substance: TAMSULOSIN HYDROCHLORIDE
     Indication: Product used for unknown indication
     Dosage: UNKNOWN
     Route: 065
  14. FLOMAX [Suspect]
     Active Substance: TAMSULOSIN HYDROCHLORIDE
     Dosage: UNKNOWN
     Route: 065
  15. FLOMAX [Suspect]
     Active Substance: TAMSULOSIN HYDROCHLORIDE
     Dosage: UNKNOWN
     Route: 065
  16. FLOMAX [Suspect]
     Active Substance: TAMSULOSIN HYDROCHLORIDE
     Dosage: UNKNOWN
     Route: 065
  17. NAPROXEN [Suspect]
     Active Substance: NAPROXEN
     Indication: Product used for unknown indication
     Dosage: UNKNOWN
     Route: 065
  18. NAPROXEN [Suspect]
     Active Substance: NAPROXEN
     Dosage: UNKNOWN
     Route: 065
  19. NAPROXEN [Suspect]
     Active Substance: NAPROXEN
     Dosage: UNKNOWN
     Route: 065
  20. PREDNISONE [Suspect]
     Active Substance: PREDNISONE
     Indication: Asthma
     Dosage: UNK
     Route: 065
  21. PREDNISONE [Suspect]
     Active Substance: PREDNISONE
     Dosage: UNK
     Route: 065
  22. PREDNISONE [Suspect]
     Active Substance: PREDNISONE
     Dosage: UNK
     Route: 065
  23. PREDNISONE [Suspect]
     Active Substance: PREDNISONE
     Dosage: UNK
     Route: 065
  24. AMLODIPINE BESYLATE [Suspect]
     Active Substance: AMLODIPINE BESYLATE
     Indication: Product used for unknown indication
     Dosage: UNKNOWN
     Route: 065
  25. CICLESONIDE [Suspect]
     Active Substance: CICLESONIDE
     Indication: Asthma
     Dosage: UNKNOWN
     Route: 065
  26. PREGABALIN [Suspect]
     Active Substance: PREGABALIN
     Indication: Product used for unknown indication
     Dosage: UNKNOWN
     Route: 065
  27. DOXYCYCLINE [Suspect]
     Active Substance: DOXYCYCLINE
     Indication: Product used for unknown indication
     Dosage: UNKNOWN
     Route: 065
  28. DOXYCYCLINE [Suspect]
     Active Substance: DOXYCYCLINE
     Dosage: UNKNOWN
     Route: 065
  29. DOXYCYCLINE [Suspect]
     Active Substance: DOXYCYCLINE
     Dosage: UNKNOWN
     Route: 065
  30. ALBUTEROL SULFATE [Suspect]
     Active Substance: ALBUTEROL SULFATE
     Indication: Asthma
     Dosage: UNK PUFF(S), PM, 100 MCG
  31. AZITHROMYCIN [Suspect]
     Active Substance: AZITHROMYCIN
     Indication: Product used for unknown indication
     Dosage: UNKNOWN
     Route: 065
  32. AZITHROMYCIN [Suspect]
     Active Substance: AZITHROMYCIN
     Dosage: UNKNOWN
     Route: 065
  33. AZITHROMYCIN [Suspect]
     Active Substance: AZITHROMYCIN
     Dosage: UNKNOWN
     Route: 065
  34. ROSUVASTATIN CALCIUM [Suspect]
     Active Substance: ROSUVASTATIN CALCIUM
     Indication: Product used for unknown indication
     Dosage: UNKNOWN
     Route: 048
  35. ROSUVASTATIN CALCIUM [Suspect]
     Active Substance: ROSUVASTATIN CALCIUM
     Dosage: UNKNOWN
     Route: 048
  36. ROSUVASTATIN CALCIUM [Suspect]
     Active Substance: ROSUVASTATIN CALCIUM
     Dosage: UNKNOWN
     Route: 048
  37. PANTOPRAZOLE SODIUM [Suspect]
     Active Substance: PANTOPRAZOLE SODIUM
     Indication: Product used for unknown indication
     Dosage: ANHYDROUS
     Route: 065
  38. ASACOL [Suspect]
     Active Substance: MESALAMINE
     Indication: Product used for unknown indication
     Dosage: UNKNOWN
     Route: 065
  39. LEVOFLOXACIN [Suspect]
     Active Substance: LEVOFLOXACIN
     Indication: Product used for unknown indication
     Dosage: UNKNOWN
     Route: 065
  40. LEVOFLOXACIN [Suspect]
     Active Substance: LEVOFLOXACIN
     Dosage: UNKNOWN
     Route: 065
  41. LEVOFLOXACIN [Suspect]
     Active Substance: LEVOFLOXACIN
     Dosage: UNKNOWN
     Route: 065
  42. RAMIPRIL [Suspect]
     Active Substance: RAMIPRIL
     Indication: Product used for unknown indication
     Dosage: UNKNOWN
     Route: 048
  43. RAMIPRIL [Suspect]
     Active Substance: RAMIPRIL
     Dosage: UNKNOWN
     Route: 048
  44. RAMIPRIL [Suspect]
     Active Substance: RAMIPRIL
     Dosage: UNKNOWN
     Route: 048
  45. RAMIPRIL [Suspect]
     Active Substance: RAMIPRIL
     Dosage: UNKNOWN
     Route: 048
  46. MESALAMINE [Suspect]
     Active Substance: MESALAMINE
     Indication: Product used for unknown indication
     Dosage: UNK
     Route: 065
  47. INFLUENZA VIRUS VACCINE [Suspect]
     Active Substance: INFLUENZA VIRUS VACCINE
     Indication: Prophylaxis
  48. SYMBICORT [Suspect]
     Active Substance: BUDESONIDE\FORMOTEROL FUMARATE DIHYDRATE
     Indication: Asthma
     Dosage: 2 DF, BID (2 DF TWO TIMES A DAY)
     Route: 055
  49. SYMBICORT [Suspect]
     Active Substance: BUDESONIDE\FORMOTEROL FUMARATE DIHYDRATE
     Dosage: UNKNOWN
     Route: 055
  50. SYMBICORT [Suspect]
     Active Substance: BUDESONIDE\FORMOTEROL FUMARATE DIHYDRATE
     Dosage: UNKNOWN
     Route: 055
  51. PREVNAR [Suspect]
     Active Substance: PNEUMOCOCCAL 7-VALENT CONJUGATE VACCINE (DIPHTHERIA CRM197 PROTEIN)
     Indication: Prophylaxis
     Dosage: UNKNOWN
  52. LYRICA [Suspect]
     Active Substance: PREGABALIN
     Indication: Product used for unknown indication
     Dosage: UNKNOWN
     Route: 065
  53. LYRICA [Suspect]
     Active Substance: PREGABALIN
     Dosage: UNKNOWN
     Route: 065
  54. LYRICA [Suspect]
     Active Substance: PREGABALIN
     Dosage: UNKNOWN
     Route: 065
  55. ACLIDINIUM BROMIDE\FORMOTEROL FUMARATE [Suspect]
     Active Substance: ACLIDINIUM BROMIDE\FORMOTEROL FUMARATE
     Indication: Product used for unknown indication
     Dosage: UNKNOWN
     Route: 055
  56. ACLIDINIUM BROMIDE\FORMOTEROL FUMARATE [Suspect]
     Active Substance: ACLIDINIUM BROMIDE\FORMOTEROL FUMARATE
     Dosage: UNKNOWN
     Route: 055
  57. SPIRIVA [Suspect]
     Active Substance: TIOTROPIUM BROMIDE MONOHYDRATE
     Indication: Asthma
     Dosage: UNKNOWN
     Route: 065
  58. SPIRIVA [Suspect]
     Active Substance: TIOTROPIUM BROMIDE MONOHYDRATE
     Dosage: UNKNOWN
     Route: 065
  59. SPIRIVA [Suspect]
     Active Substance: TIOTROPIUM BROMIDE MONOHYDRATE
     Dosage: 2 DF, QD
     Route: 065
  60. ACLIDINIUM BROMIDE\FORMOTEROL FUMARATE [Suspect]
     Active Substance: ACLIDINIUM BROMIDE\FORMOTEROL FUMARATE
     Indication: Product used for unknown indication
     Dosage: UNKNOWN
     Route: 055
  61. ACLIDINIUM BROMIDE\FORMOTEROL FUMARATE [Suspect]
     Active Substance: ACLIDINIUM BROMIDE\FORMOTEROL FUMARATE
     Dosage: UNKNOWN
     Route: 055
  62. ALBUTEROL SULFATE [Suspect]
     Active Substance: ALBUTEROL SULFATE
     Indication: Asthma
     Dosage: UNK
     Route: 065
  63. ALBUTEROL SULFATE [Suspect]
     Active Substance: ALBUTEROL SULFATE
     Dosage: UNK
     Route: 065
  64. PNEUMOCOCCAL 13-VALENT CONJUGATE VACCINE [Suspect]
     Active Substance: PNEUMOCOCCAL 13-VALENT CONJUGATE VACCINE
     Indication: Prophylaxis
     Dosage: UNK
     Route: 065
  65. FLUMIST QUADRIVALENT [Suspect]
     Active Substance: INFLUENZA A VIRUS A/CALIFORNIA/7/2009 (H1N1) LIVE(ATTENUATED) ANTIGEN\INFLUENZA A VIRUS A/TEXAS/50/2
  66. PANTOPRAZOLE SODIUM [Suspect]
     Active Substance: PANTOPRAZOLE SODIUM
     Indication: Product used for unknown indication
     Dosage: UNK
     Route: 065
  67. ALVESCO [Suspect]
     Active Substance: CICLESONIDE
     Indication: Product used for unknown indication
     Dosage: UNK
     Route: 065
  68. SYMBICORT [Suspect]
     Active Substance: BUDESONIDE\FORMOTEROL FUMARATE DIHYDRATE
     Indication: Product used for unknown indication
     Dosage: UNK
     Route: 065
  69. INFLUENZA VIRUS VACCINE [Suspect]
     Active Substance: INFLUENZA VIRUS VACCINE
     Indication: Product used for unknown indication
     Dosage: UNK
     Route: 065

REACTIONS (22)
  - Gastrooesophageal reflux disease [Unknown]
  - Hypertension [Unknown]
  - Congenital hiatus hernia [Unknown]
  - Bronchiectasis [Unknown]
  - Dyspnoea [Unknown]
  - Breath sounds abnormal [Unknown]
  - Micturition urgency [Unknown]
  - Coronary artery disease [Unknown]
  - Full blood count abnormal [Unknown]
  - Joint injury [Unknown]
  - Asthma [Unknown]
  - Benign prostatic hyperplasia [Unknown]
  - Dyspnoea exertional [Unknown]
  - Obstructive airways disorder [Unknown]
  - Hypercholesterolaemia [Unknown]
  - Chronic obstructive pulmonary disease [Unknown]
  - Malignant melanoma in situ [Unknown]
  - Transient ischaemic attack [Unknown]
  - Productive cough [Unknown]
  - Loss of personal independence in daily activities [Unknown]
  - Wheezing [Unknown]
  - Therapeutic product effect incomplete [Unknown]
